FAERS Safety Report 4301997-0 (Version None)
Quarter: 2004Q1

REPORT INFORMATION
  Report Type: 
  Country: None (occurrence: None)
  Receive Date: 20040220
  Receipt Date: 20040212
  Transmission Date: 20041129
  Serious: No
  Sender: FDA-Public Use
  Company Number: 2004GB00311

PATIENT
  Sex: Male

DRUGS (9)
  1. LOSEC [Suspect]
     Indication: HYPERCHLORHYDRIA
     Dates: start: 19970101, end: 20030125
  2. LOSEC [Suspect]
     Indication: HYPERCHLORHYDRIA
     Dates: start: 20040129
  3. LOSEC [Suspect]
     Indication: HYPERCHLORHYDRIA
     Dosage: 20 MG QD PO
     Route: 048
     Dates: start: 20040126, end: 20040129
  4. DIGOXIN [Suspect]
     Indication: ARRHYTHMIA
     Dosage: 0.25 MG DAILY PO
     Route: 048
  5. ALLOPURINOL [Concomitant]
  6. FLUCLOXACILLIN [Concomitant]
  7. FERROUS SULFATE TAB [Concomitant]
  8. TAMSULOSIN [Concomitant]
  9. WARFARIN SODIUM [Concomitant]

REACTIONS (6)
  - ASTHENIA [None]
  - DIZZINESS [None]
  - DRUG INTERACTION [None]
  - DYSPEPSIA [None]
  - NAUSEA [None]
  - OVERDOSE [None]
